FAERS Safety Report 8587530-6 (Version None)
Quarter: 2012Q3

REPORT INFORMATION
  Report Type: 
  Country: None (occurrence: None)
  Receive Date: 20120810
  Receipt Date: 20120807
  Transmission Date: 20120928
  Serious: Yes (Death)
  Sender: FDA-Public Use
  Company Number: US-B.I. PHARMACEUTICALS,INC./RIDGEFIELD-2012-BP-17481BP

PATIENT

DRUGS (1)
  1. PRADAXA [Suspect]
     Indication: HEART VALVE REPLACEMENT
     Dosage: 300 MG
     Route: 048

REACTIONS (1)
  - CARDIAC VALVE REPLACEMENT COMPLICATION [None]
